FAERS Safety Report 21232164 (Version 1)
Quarter: 2022Q3

REPORT INFORMATION
  Report Type: Spontaneous
  Country: US (occurrence: None)
  Receive Date: 20220818
  Receipt Date: 20220818
  Transmission Date: 20221027
  Serious: No
  Sender: FDA-Public Use
  Company Number: None

PATIENT
  Age: 32 Year
  Sex: Female
  Weight: 104 kg

DRUGS (22)
  1. EVUSHELD [Suspect]
     Active Substance: CILGAVIMAB\TIXAGEVIMAB
     Indication: COVID-19 prophylaxis
     Dosage: OTHER FREQUENCY : ONCE;?
     Route: 030
     Dates: start: 20220818, end: 20220818
  2. ACETAMINOPHEN [Concomitant]
     Active Substance: ACETAMINOPHEN
  3. ACETAZOLAMIDE [Concomitant]
     Active Substance: ACETAZOLAMIDE
  4. AMLODIPINE [Concomitant]
     Active Substance: AMLODIPINE BESYLATE
  5. ATORVASTATIN [Concomitant]
     Active Substance: ATORVASTATIN
  6. azathiprine [Concomitant]
  7. BUPROPION [Concomitant]
     Active Substance: BUPROPION
  8. CEPHALEXIN [Concomitant]
     Active Substance: CEPHALEXIN
  9. CHLORHEXIDINE [Concomitant]
     Active Substance: CHLORHEXIDINE
  10. DIPHENHYDRAMINE [Concomitant]
     Active Substance: DIPHENHYDRAMINE
  11. HEPARIN [Concomitant]
     Active Substance: HEPARIN SODIUM
  12. HYDROCORTISONE [Concomitant]
     Active Substance: HYDROCORTISONE
  13. HYDROMORPHONE [Concomitant]
     Active Substance: HYDROMORPHONE
  14. insulin, regular, humalog R [Concomitant]
  15. LISINOPRIL [Concomitant]
     Active Substance: LISINOPRIL
  16. MIRTAZAPINE [Concomitant]
     Active Substance: MIRTAZAPINE
  17. LOVAZA [Concomitant]
     Active Substance: OMEGA-3-ACID ETHYL ESTERS
  18. OXCARBAZEPINE [Concomitant]
     Active Substance: OXCARBAZEPINE
  19. PANTOPRAZOLE SODIUM [Concomitant]
     Active Substance: PANTOPRAZOLE SODIUM
  20. SERTRALINE [Concomitant]
     Active Substance: SERTRALINE HYDROCHLORIDE
  21. SITAGLIPTIN [Concomitant]
     Active Substance: SITAGLIPTIN
  22. TIZANIDINE [Concomitant]
     Active Substance: TIZANIDINE

REACTIONS (1)
  - Product administration error [None]

NARRATIVE: CASE EVENT DATE: 20220818
